FAERS Safety Report 17409784 (Version 1)
Quarter: 2020Q1

REPORT INFORMATION
  Report Type: Spontaneous
  Country: US (occurrence: US)
  Receive Date: 20200212
  Receipt Date: 20200212
  Transmission Date: 20200409
  Serious: Yes (Disabling, Other)
  Sender: FDA-Public Use
  Company Number: US-PFIZER INC-2020042237

PATIENT
  Age: 28 Year
  Sex: Female
  Weight: 54.88 kg

DRUGS (6)
  1. CLARITIN [Concomitant]
     Active Substance: LORATADINE
     Indication: HYPERSENSITIVITY
     Dosage: UNK, 1X/DAY [TAKES ONCE A DAY]
  2. EMERGEN-C [Concomitant]
     Active Substance: VITAMINS
     Dosage: UNK, DAILY (EVERY DAY)
  3. BENADRYL [Concomitant]
     Active Substance: DIPHENHYDRAMINE HYDROCHLORIDE
     Indication: HYPERSENSITIVITY
     Dosage: UNK
  4. ZICAM ALLERGY RELIEF [Concomitant]
     Active Substance: HOMEOPATHICS
     Indication: HYPERSENSITIVITY
     Dosage: UNK
  5. CHAPSTICK CLASSIC ORIGINAL [Suspect]
     Active Substance: PETROLATUM
     Indication: CHAPPED LIPS
     Dosage: UNK, (DEPENDS ON THE WEATHER AND USUALLY USES 2-3 TIMES A DAY)
  6. XANAX [Concomitant]
     Active Substance: ALPRAZOLAM
     Indication: ANXIETY
     Dosage: 0.5 MG, 3X/DAY(ONE AT LUNCH, + ONE WITH DINNER)
     Dates: start: 2017

REACTIONS (9)
  - Face injury [Unknown]
  - Amnesia [Unknown]
  - Aphonia [Unknown]
  - Road traffic accident [Unknown]
  - Facial bones fracture [Unknown]
  - Paranasal sinus hypersecretion [Unknown]
  - Paranasal sinus injury [Unknown]
  - Sinus disorder [Unknown]
  - Brain injury [Unknown]

NARRATIVE: CASE EVENT DATE: 2005
